FAERS Safety Report 4692507-7 (Version None)
Quarter: 2005Q2

REPORT INFORMATION
  Report Type: 
  Country: None (occurrence: None)
  Receive Date: 20050613
  Receipt Date: 20050301
  Transmission Date: 20051028
  Serious: No
  Sender: FDA-Public Use
  Company Number: 2005-00404

PATIENT
  Age: 67 Year
  Sex: Female

DRUGS (3)
  1. VELCADE [Suspect]
     Indication: MULTIPLE MYELOMA
     Dosage: 1.30 MG/M2, IV BOLUS
     Route: 040
     Dates: start: 20050214, end: 20050224
  2. PAMIDRONATE DISODIUM [Concomitant]
  3. FLUCONAZOLE [Concomitant]

REACTIONS (1)
  - RASH GENERALISED [None]
